FAERS Safety Report 7766488-3 (Version None)
Quarter: 2011Q3

REPORT INFORMATION
  Report Type: 
  Country: None (occurrence: None)
  Receive Date: 20110922
  Receipt Date: 20110915
  Transmission Date: 20111222
  Serious: No
  Sender: FDA-Public Use
  Company Number: US-BIOGENIDEC-2011BI035589

PATIENT
  Age: 48 Year
  Sex: Female

DRUGS (2)
  1. TYSABRI [Suspect]
     Indication: MULTIPLE SCLEROSIS
     Route: 042
     Dates: start: 20100127, end: 20110501
  2. TYSABRI [Suspect]
     Route: 042
     Dates: start: 20070501, end: 20081101

REACTIONS (11)
  - HYPOAESTHESIA [None]
  - MULTIPLE SCLEROSIS RELAPSE [None]
  - PAIN [None]
  - COMPLEX REGIONAL PAIN SYNDROME [None]
  - POST-TRAUMATIC NECK SYNDROME [None]
  - PAIN IN EXTREMITY [None]
  - HAIR COLOUR CHANGES [None]
  - CONTUSION [None]
  - ROAD TRAFFIC ACCIDENT [None]
  - TRAUMATIC HAEMATOMA [None]
  - HAIR GROWTH ABNORMAL [None]
